FAERS Safety Report 6134213-8 (Version None)
Quarter: 2009Q1

REPORT INFORMATION
  Report Type: 
  Country: None (occurrence: None)
  Receive Date: 20090325
  Receipt Date: 20090308
  Transmission Date: 20090719
  Serious: Yes (Hospitalization, Other)
  Sender: FDA-Public Use
  Company Number: 2006S1007352

PATIENT
  Age: 61 Year
  Sex: Female
  Weight: 49.4421 kg

DRUGS (14)
  1. PHOSPHOSODA FLAVOR NOT SPECIFIED [Suspect]
     Indication: COLONOSCOPY
     Dosage: 90 MG;TOAL;PO
     Route: 048
     Dates: start: 20050829, end: 20050829
  2. ALTACE [Concomitant]
  3. CELEBREX [Concomitant]
  4. LIPITOR [Concomitant]
  5. DIAZIDE [Concomitant]
  6. VICODIN [Concomitant]
  7. XANAX [Concomitant]
  8. NEXIUM [Concomitant]
  9. NORPRAMIN [Concomitant]
  10. CLARINEX [Concomitant]
  11. ACTONEL [Concomitant]
  12. WELCHOL [Concomitant]
  13. CARAFATE [Concomitant]
  14. FLEET ENEMA (SODIUM PHOSPHATE) [Concomitant]

REACTIONS (6)
  - ARTERIOSCLEROSIS [None]
  - DIALYSIS [None]
  - NEPHROCALCINOSIS [None]
  - PARAESTHESIA [None]
  - RENAL FAILURE [None]
  - TUBULOINTERSTITIAL NEPHRITIS [None]
